FAERS Safety Report 12838313 (Version 1)
Quarter: 2016Q4

REPORT INFORMATION
  Report Type: Spontaneous
  Country: US (occurrence: US)
  Receive Date: 20161012
  Receipt Date: 20161012
  Transmission Date: 20170207
  Serious: No
  Sender: FDA-Public Use
  Company Number: US-MYLANLABS-2016M1037765

PATIENT
  Sex: Female

DRUGS (1)
  1. ESTRADIOL. [Suspect]
     Active Substance: ESTRADIOL
     Dosage: 0.1 MG, QD, CHANGES TWICE WEEKLY
     Route: 062
     Dates: start: 2016, end: 2016

REACTIONS (3)
  - Feeling abnormal [Recovered/Resolved]
  - Drug ineffective [Recovered/Resolved]
  - Migraine [Recovered/Resolved]

NARRATIVE: CASE EVENT DATE: 2016
